FAERS Safety Report 4440740-1 (Version None)
Quarter: 2004Q3

REPORT INFORMATION
  Report Type: 
  Country: None (occurrence: None)
  Receive Date: 20040831
  Receipt Date: 20040819
  Transmission Date: 20050211
  Serious: No
  Sender: FDA-Public Use
  Company Number: CART-10366

PATIENT
  Age: 44 Year
  Sex: Male

DRUGS (2)
  1. CARTICEL [Suspect]
     Indication: ARTHROPATHY
     Dosage: 1 ONCE IS
     Dates: start: 19991029, end: 19991029
  2. CARTICEL [Suspect]
     Indication: ARTHROPATHY
     Dosage: 1 ONCE IS
     Dates: start: 20030405, end: 20020405

REACTIONS (6)
  - CHONDROPATHY [None]
  - FAILURE OF IMPLANT [None]
  - FALL [None]
  - JOINT LOCK [None]
  - SURGICAL PROCEDURE REPEATED [None]
  - TRAUMATIC ARTHRITIS [None]
